FAERS Safety Report 16075205 (Version 1)
Quarter: 2019Q1

REPORT INFORMATION
  Report Type: Spontaneous
  Country: US (occurrence: US)
  Receive Date: 20190315
  Receipt Date: 20190315
  Transmission Date: 20190418
  Serious: No
  Sender: FDA-Public Use
  Company Number: US-ASTRAZENECA-2019SE37196

PATIENT

DRUGS (25)
  1. NOVOLOG [Concomitant]
     Active Substance: INSULIN ASPART
  2. METOPROLOL. [Suspect]
     Active Substance: METOPROLOL
     Dosage: UNKNOWN
     Route: 065
  3. CLONIDINE. [Concomitant]
     Active Substance: CLONIDINE
  4. TORSEMIDE. [Concomitant]
     Active Substance: TORSEMIDE
  5. LANTUS [Concomitant]
     Active Substance: INSULIN GLARGINE
  6. ALBUTEROL. [Concomitant]
     Active Substance: ALBUTEROL
  7. CYMBALTA [Concomitant]
     Active Substance: DULOXETINE HYDROCHLORIDE
  8. MYCOSTATIN [Concomitant]
     Active Substance: NYSTATIN
  9. LYRICA [Suspect]
     Active Substance: PREGABALIN
     Dosage: 1 CAP TWICE A DAY
     Route: 065
     Dates: start: 20180717
  10. DILTIAZEM. [Concomitant]
     Active Substance: DILTIAZEM
  11. NYSTATIN. [Concomitant]
     Active Substance: NYSTATIN
  12. OMEPRAZOLE. [Concomitant]
     Active Substance: OMEPRAZOLE
  13. MELATONIN [Concomitant]
     Active Substance: MELATONIN
  14. ATORVASTATIN [Concomitant]
     Active Substance: ATORVASTATIN
  15. ALDACTONE [Concomitant]
     Active Substance: SPIRONOLACTONE
  16. OMEPRAZOLE. [Suspect]
     Active Substance: OMEPRAZOLE
     Dosage: 1 CAP ORALLY ONCE
     Route: 048
     Dates: start: 20181206
  17. NITROSTAT [Concomitant]
     Active Substance: NITROGLYCERIN
  18. TRAZODONE [Concomitant]
     Active Substance: TRAZODONE HYDROCHLORIDE
  19. LOSARTAN. [Concomitant]
     Active Substance: LOSARTAN
  20. IRON [Concomitant]
     Active Substance: IRON
  21. ATARAX [Concomitant]
     Active Substance: HYDROXYZINE HYDROCHLORIDE
  22. METOLAZONE. [Concomitant]
     Active Substance: METOLAZONE
  23. VENTOLIN [Concomitant]
     Active Substance: ALBUTEROL SULFATE
  24. SPIRONOLACTONE. [Concomitant]
     Active Substance: SPIRONOLACTONE
  25. DULOXETINE. [Concomitant]
     Active Substance: DULOXETINE

REACTIONS (1)
  - Multiple allergies [Unknown]
